FAERS Safety Report 10596678 (Version 3)
Quarter: 2015Q1

REPORT INFORMATION
  Report Type: Report from Study
  Country: US (occurrence: US)
  Receive Date: 20141120
  Receipt Date: 20150325
  Transmission Date: 20150720
  Serious: Yes (Other)
  Sender: FDA-Public Use
  Company Number: US-SA-2014SA157456

PATIENT
  Age: 53 Year
  Sex: Female
  Weight: 54.4 kg

DRUGS (1)
  1. AUBAGIO [Suspect]
     Active Substance: TERIFLUNOMIDE
     Indication: MULTIPLE SCLEROSIS
     Route: 048
     Dates: start: 20141016

REACTIONS (8)
  - Pollakiuria [Unknown]
  - Weight increased [Unknown]
  - Urinary incontinence [Unknown]
  - Vein disorder [Unknown]
  - Alopecia [Recovered/Resolved]
  - Dementia [Not Recovered/Not Resolved]
  - Memory impairment [Unknown]
  - Mobility decreased [Not Recovered/Not Resolved]
